FAERS Safety Report 9184938 (Version 1)
Quarter: 2013Q1

REPORT INFORMATION
  Report Type: Spontaneous
  Country: US (occurrence: US)
  Receive Date: 20130325
  Receipt Date: 20130325
  Transmission Date: 20140127
  Serious: Yes (Other)
  Sender: FDA-Public Use
  Company Number: US-BRISTOL-MYERS SQUIBB COMPANY-16540130

PATIENT
  Age: 52 Year
  Sex: Female
  Weight: 117.91 kg

DRUGS (4)
  1. ERBITUX SOLN FOR INF [Suspect]
     Indication: COLON CANCER METASTATIC
     Dosage: RECEIVED 5 WEEKLY?5 OR 6 INF
     Dates: start: 201110, end: 201112
  2. 5-FLUOROURACIL [Suspect]
  3. FOLINIC ACID [Suspect]
  4. OXALIPLATIN [Suspect]

REACTIONS (3)
  - Malignant neoplasm progression [Unknown]
  - Rash [Not Recovered/Not Resolved]
  - Dermatitis acneiform [Not Recovered/Not Resolved]
